FAERS Safety Report 7296615-6 (Version None)
Quarter: 2011Q1

REPORT INFORMATION
  Report Type: 
  Country: None (occurrence: None)
  Receive Date: 20110216
  Receipt Date: 20110208
  Transmission Date: 20110831
  Serious: Yes (Other)
  Sender: FDA-Public Use
  Company Number: PHHY2011CA00984

PATIENT
  Sex: Male
  Weight: 70.295 kg

DRUGS (3)
  1. EXTAVIA [Suspect]
     Indication: RELAPSING-REMITTING MULTIPLE SCLEROSIS
     Dosage: 8 MIU, QOD
     Route: 058
     Dates: start: 20101222
  2. TYLENOL [Concomitant]
     Dosage: UNK
  3. ALEVE [Concomitant]
     Dosage: UNK

REACTIONS (4)
  - TONGUE DISORDER [None]
  - APHASIA [None]
  - SPEECH DISORDER [None]
  - DYSARTHRIA [None]
